FAERS Safety Report 19312982 (Version 3)
Quarter: 2021Q3

REPORT INFORMATION
  Report Type: Spontaneous
  Country: DE (occurrence: DE)
  Receive Date: 20210527
  Receipt Date: 20210730
  Transmission Date: 20211014
  Serious: Yes (Other)
  Sender: FDA-Public Use
  Company Number: DE-NOVOPROD-814236

PATIENT
  Age: 53 Year
  Sex: Female
  Weight: 53 kg

DRUGS (2)
  1. NOVORAPID [Suspect]
     Active Substance: INSULIN ASPART
     Indication: TYPE 1 DIABETES MELLITUS
     Dosage: 18 IU
     Route: 058
  2. NOVORAPID [Suspect]
     Active Substance: INSULIN ASPART
     Dosage: UNK(CARTRIDGE CHANGED)
     Route: 058

REACTIONS (5)
  - Product physical issue [Unknown]
  - Product leakage [Unknown]
  - Product storage error [Unknown]
  - Diabetic ketoacidosis [Recovered/Resolved]
  - Blood glucose increased [Unknown]

NARRATIVE: CASE EVENT DATE: 202105
